FAERS Safety Report 8000424-X (Version None)
Quarter: 2011Q4

REPORT INFORMATION
  Report Type: 
  Country: None (occurrence: None)
  Receive Date: 20111123
  Receipt Date: 20110831
  Transmission Date: 20120403
  Serious: Yes (Hospitalization)
  Sender: FDA-Public Use
  Company Number: 331106

PATIENT
  Age: 66 Year
  Sex: Female
  Weight: 106.6 kg

DRUGS (12)
  1. CELEXA [Concomitant]
  2. GLIPIZIDE [Concomitant]
  3. AMBIEN [Concomitant]
  4. DYAZIDE [Concomitant]
  5. TENORMIN [Concomitant]
  6. ARICEPT [Concomitant]
  7. METFORMIN HCL [Concomitant]
  8. VICTOZA [Suspect]
     Indication: TYPE 2 DIABETES MELLITUS
     Dosage: SUBCUTANEOUS
     Route: 058
     Dates: start: 20110622, end: 20110627
  9. ZOCOR [Concomitant]
  10. SLOW MAG (MAGNESIUM CHLORIDE ANHYDROUS) [Concomitant]
  11. ALPRAZOLAM [Concomitant]
  12. PLAVIX [Concomitant]

REACTIONS (1)
  - PANCREATITIS ACUTE [None]
